FAERS Safety Report 9397701 (Version 1)
Quarter: 2013Q3

REPORT INFORMATION
  Report Type: Report from Study
  Country: CN (occurrence: CN)
  Receive Date: 20130712
  Receipt Date: 20130712
  Transmission Date: 20140515
  Serious: Yes (Other)
  Sender: FDA-Public Use
  Company Number: CN-ROCHE-1132295

PATIENT
  Age: 53 Year
  Sex: Female
  Weight: 55 kg

DRUGS (4)
  1. PEGASYS [Suspect]
     Indication: HEPATITIS C
     Route: 058
     Dates: start: 20120224, end: 20120608
  2. PEGASYS [Suspect]
     Route: 058
     Dates: start: 20120615, end: 201303
  3. RIBAVIRIN (NON-ROCHE/NON-COMPARATOR) [Concomitant]
     Indication: HEPATITIS C
     Route: 048
     Dates: start: 20120224, end: 20120608
  4. RIBAVIRIN (NON-ROCHE/NON-COMPARATOR) [Concomitant]
     Route: 048
     Dates: start: 20120615

REACTIONS (4)
  - White blood cell count decreased [Unknown]
  - Neutrophil count decreased [Unknown]
  - Hepatitis C [Unknown]
  - Alanine aminotransferase increased [Unknown]
